FAERS Safety Report 4958162-3 (Version None)
Quarter: 2006Q1

REPORT INFORMATION
  Report Type: 
  Country: None (occurrence: None)
  Receive Date: 20060330
  Receipt Date: 20060203
  Transmission Date: 20060701
  Serious: Yes (Other)
  Sender: FDA-Public Use
  Company Number: JP-ROCHE-436350

PATIENT
  Age: 5 Year
  Sex: Male
  Weight: 15 kg

DRUGS (2)
  1. ROCEPHIN [Suspect]
     Indication: BRONCHITIS ACUTE
     Route: 041
     Dates: start: 20060129, end: 20060202
  2. SYMMETREL [Concomitant]
     Dosage: DOSE FORM: FINE GRANULES.
     Route: 048
     Dates: start: 20060129, end: 20060201

REACTIONS (1)
  - PAIN IN EXTREMITY [None]
